FAERS Safety Report 16624588 (Version 1)
Quarter: 2019Q3

REPORT INFORMATION
  Report Type: Spontaneous
  Country: US (occurrence: US)
  Receive Date: 20190611
  Receipt Date: 20190611
  Transmission Date: 20191004
  Serious: No
  Sender: FDA-Public Use
  Company Number: None

PATIENT
  Age: 65 Year
  Sex: Female
  Weight: 91.63 kg

DRUGS (1)
  1. OTREXUP [Suspect]
     Active Substance: METHOTREXATE
     Indication: COLON CANCER
     Route: 058
     Dates: start: 201905

REACTIONS (5)
  - Pain [None]
  - Muscle disorder [None]
  - Back disorder [None]
  - Mouth ulceration [None]
  - Stress [None]
